FAERS Safety Report 6028873-X (Version None)
Quarter: 2008Q4

REPORT INFORMATION
  Report Type: 
  Country: None (occurrence: None)
  Receive Date: 20081231
  Receipt Date: 20081216
  Transmission Date: 20090506
  Serious: Yes (Other)
  Sender: FDA-Public Use
  Company Number: 2008S1022397

PATIENT
  Age: 46 Year
  Sex: Female

DRUGS (4)
  1. KAVAIN PLUS (KAVAIN PLUS) [Suspect]
     Dosage: 140 MG;
  2. HYDROCHLOROTHIAZIDE [Suspect]
  3. VALSARTAN [Suspect]
  4. PROPRANOLOL [Suspect]

REACTIONS (3)
  - ALANINE AMINOTRANSFERASE INCREASED [None]
  - HEPATOTOXICITY [None]
  - LIVER INJURY [None]
